FAERS Safety Report 5396632-7 (Version None)
Quarter: 2007Q3

REPORT INFORMATION
  Report Type: 
  Country: None (occurrence: None)
  Receive Date: 20070725
  Receipt Date: 20070719
  Transmission Date: 20080115
  Serious: Yes (Death, Hospitalization)
  Sender: FDA-Public Use
  Company Number: A0653047A

PATIENT
  Sex: Female

DRUGS (9)
  1. AVANDIA [Suspect]
     Indication: TYPE 2 DIABETES MELLITUS
     Dosage: 8MG PER DAY
     Route: 048
     Dates: start: 20010101, end: 20060501
  2. EFFEXOR [Concomitant]
  3. UNSPECIFIED MEDICATION [Concomitant]
  4. LISINOPRIL [Concomitant]
  5. PROCRIT [Concomitant]
  6. FUROSEMIDE [Concomitant]
  7. HYDROCODONE BITARTRATE [Concomitant]
  8. HUMULIN R [Concomitant]
  9. COREG [Concomitant]

REACTIONS (10)
  - BLOOD GLUCOSE FLUCTUATION [None]
  - CHROMATURIA [None]
  - DIZZINESS [None]
  - DYSPNOEA [None]
  - FATIGUE [None]
  - HEART RATE INCREASED [None]
  - JAUNDICE [None]
  - LOCAL SWELLING [None]
  - MYOCARDIAL INFARCTION [None]
  - TREMOR [None]
